FAERS Safety Report 24005387 (Version 1)
Quarter: 2024Q2

REPORT INFORMATION
  Report Type: Spontaneous
  Country: US (occurrence: US)
  Receive Date: 20240624
  Receipt Date: 20240624
  Transmission Date: 20240717
  Serious: No
  Sender: FDA-Public Use
  Company Number: US-BoehringerIngelheim-2024-BI-035657

PATIENT
  Sex: Male

DRUGS (1)
  1. COMBIVENT RESPIMAT [Suspect]
     Active Substance: ALBUTEROL SULFATE\IPRATROPIUM BROMIDE
     Indication: Drug therapy
     Dosage: AS NEEDED, AS MANY TIMES AS HE NEEDS?INHALATION SPRAY
     Dates: start: 2012

REACTIONS (1)
  - Product use in unapproved indication [Unknown]
